FAERS Safety Report 19974054 (Version 1)
Quarter: 2021Q4

REPORT INFORMATION
  Report Type: Spontaneous
  Country: US (occurrence: US)
  Receive Date: 20211018
  Receipt Date: 20211018
  Transmission Date: 20220303
  Serious: Yes (Hospitalization)
  Sender: FDA-Public Use
  Company Number: None

PATIENT
  Sex: Male

DRUGS (30)
  1. XOLAIR [Suspect]
     Active Substance: OMALIZUMAB
     Indication: Asthma
     Route: 058
     Dates: start: 20190914
  2. XOLAIR [Suspect]
     Active Substance: OMALIZUMAB
     Indication: Asthma
     Route: 058
     Dates: start: 20190914
  3. COVID-19 VACCINE NOS [Suspect]
     Active Substance: COVID-19 VACCINE NOS
  4. ALBUTEROL [Concomitant]
     Active Substance: ALBUTEROL
  5. ALENDRONATE [Concomitant]
     Active Substance: ALENDRONATE SODIUM
  6. ARIPIPRAZOLE [Concomitant]
     Active Substance: ARIPIPRAZOLE
  7. ASPIRIN [Concomitant]
     Active Substance: ASPIRIN
  8. AZITHROMYCIN ANHYDROUS [Concomitant]
     Active Substance: AZITHROMYCIN ANHYDROUS
  9. CARVEDILOL [Concomitant]
     Active Substance: CARVEDILOL
  10. DULOXETINE [Concomitant]
     Active Substance: DULOXETINE
  11. FLUOXETINE [Concomitant]
     Active Substance: FLUOXETINE HYDROCHLORIDE
  12. FLUTICASONE SPR [Concomitant]
  13. GABAPENTIN [Concomitant]
     Active Substance: GABAPENTIN
  14. HYDROXYZINE HYDROCHLORIDE [Concomitant]
     Active Substance: HYDROXYZINE HYDROCHLORIDE
  15. ISOSORBIDE DINITRATE [Concomitant]
     Active Substance: ISOSORBIDE DINITRATE
  16. ISOSORBIDE MONONITRATE [Concomitant]
     Active Substance: ISOSORBIDE MONONITRATE
  17. LAMOTRIGINE [Concomitant]
     Active Substance: LAMOTRIGINE
  18. MECLIZINE [Concomitant]
     Active Substance: MECLIZINE HYDROCHLORIDE
  19. MONTELUKAST [Concomitant]
     Active Substance: MONTELUKAST SODIUM
  20. NALTREXONE [Concomitant]
     Active Substance: NALTREXONE
  21. NEXLIZET [Concomitant]
     Active Substance: BEMPEDOIC ACID\EZETIMIBE
  22. NYSTATIN [Concomitant]
     Active Substance: NYSTATIN
  23. OMEPRAZOLE [Concomitant]
     Active Substance: OMEPRAZOLE
  24. OXYCODONE [Concomitant]
     Active Substance: OXYCODONE
  25. PREDNISONE [Concomitant]
     Active Substance: PREDNISONE
  26. PROAIR HFA [Concomitant]
     Active Substance: ALBUTEROL SULFATE
  27. ROSUVASTATIN [Concomitant]
     Active Substance: ROSUVASTATIN
  28. TAMSULOSIN [Concomitant]
     Active Substance: TAMSULOSIN
  29. TRAZODONE [Concomitant]
     Active Substance: TRAZODONE HYDROCHLORIDE
  30. WIXELA INHUB [Concomitant]
     Active Substance: FLUTICASONE PROPIONATE\SALMETEROL XINAFOATE

REACTIONS (1)
  - Asthma [None]
